FAERS Safety Report 10996047 (Version 2)
Quarter: 2015Q2

REPORT INFORMATION
  Report Type: Spontaneous
  Country: US (occurrence: US)
  Receive Date: 20150407
  Receipt Date: 20150525
  Transmission Date: 20150821
  Serious: No
  Sender: FDA-Public Use
  Company Number: US-JNJFOC-20130902753

PATIENT
  Age: 57 Year
  Sex: Female
  Weight: 83.01 kg

DRUGS (4)
  1. PROGESTERONE. [Concomitant]
     Active Substance: PROGESTERONE
     Route: 065
  2. AZATHIOPRINE. [Concomitant]
     Active Substance: AZATHIOPRINE
     Dosage: 6 MONTHS AGO
     Route: 065
     Dates: end: 2013
  3. TYLENOL [Concomitant]
     Active Substance: ACETAMINOPHEN
     Route: 065
  4. REMICADE [Suspect]
     Active Substance: INFLIXIMAB
     Indication: COLITIS ULCERATIVE
     Route: 042
     Dates: start: 2012

REACTIONS (2)
  - Hepatic enzyme increased [Unknown]
  - Antinuclear antibody increased [Unknown]

NARRATIVE: CASE EVENT DATE: 2013
